FAERS Safety Report 5942492-2 (Version None)
Quarter: 2008Q4

REPORT INFORMATION
  Report Type: 
  Country: None (occurrence: None)
  Receive Date: 20081105
  Receipt Date: 20081024
  Transmission Date: 20090506
  Serious: Yes (Other)
  Sender: FDA-Public Use
  Company Number: FR-PFIZER INC-2008090150

PATIENT
  Age: 102 Year
  Sex: Female

DRUGS (4)
  1. LYRICA [Suspect]
     Indication: NEURALGIA
  2. ACETAMINOPHEN [Concomitant]
  3. FUROSEMIDE [Concomitant]
  4. IRBESARTAN [Concomitant]

REACTIONS (3)
  - ACUTE PULMONARY OEDEMA [None]
  - HYPERTENSION [None]
  - PAIN [None]
